FAERS Safety Report 9186608 (Version 1)
Quarter: 2013Q1

REPORT INFORMATION
  Report Type: Spontaneous
  Country: US (occurrence: US)
  Receive Date: 20130325
  Receipt Date: 20130325
  Transmission Date: 20140127
  Serious: Yes (Other)
  Sender: FDA-Public Use
  Company Number: US-JNJFOC-20130309714

PATIENT
  Sex: Male

DRUGS (2)
  1. TYLENOL 3 [Suspect]
     Indication: BRONCHITIS
     Route: 065
  2. TYLENOL 3 [Suspect]
     Indication: INFLUENZA
     Route: 065

REACTIONS (2)
  - Sleep apnoea syndrome [Unknown]
  - Hypoacusis [Not Recovered/Not Resolved]
